FAERS Safety Report 13628924 (Version 1)
Quarter: 2017Q2

REPORT INFORMATION
  Report Type: Spontaneous
  Country: US (occurrence: US)
  Receive Date: 20170608
  Receipt Date: 20170608
  Transmission Date: 20170830
  Serious: No
  Sender: FDA-Public Use
  Company Number: US-PFIZER INC-2017246038

PATIENT
  Sex: Male
  Weight: 82.55 kg

DRUGS (1)
  1. VIAGRA [Suspect]
     Active Substance: SILDENAFIL CITRATE
     Indication: ERECTILE DYSFUNCTION
     Dosage: 100 MG, DAILY
     Route: 048
     Dates: end: 201705

REACTIONS (3)
  - Drug ineffective [Unknown]
  - Hyperhidrosis [Unknown]
  - Ejaculation failure [Unknown]
